FAERS Safety Report 25980233 (Version 1)
Quarter: 2025Q4

REPORT INFORMATION
  Report Type: Spontaneous
  Country: JP (occurrence: JP)
  Receive Date: 20251030
  Receipt Date: 20251030
  Transmission Date: 20260118
  Serious: Yes (Other)
  Sender: EISAI
  Company Number: JP-Eisai-202402982_LEN-EC_P_1

PATIENT
  Age: 66 Year
  Sex: Female

DRUGS (5)
  1. LENVATINIB [Suspect]
     Active Substance: LENVATINIB
     Indication: Endometrial cancer
     Route: 048
  2. LENVATINIB [Suspect]
     Active Substance: LENVATINIB
     Indication: Uterine cancer
     Dosage: FREQUENCY UNKNOWN; THE PATIENT WAS TAKING THE MEDICATION WHILE INTERMITTENTLY DISCONTINUING IT BASED ON HER OWN DECISION
     Route: 048
  3. LENVATINIB [Suspect]
     Active Substance: LENVATINIB
     Dosage: FREQUENCY UNKNOWN
     Route: 048
  4. LENVATINIB [Suspect]
     Active Substance: LENVATINIB
     Dosage: ADMINISTRATION OF 5 DAYS ON, 2 DAYS OFF
     Route: 048
  5. PEMBROLIZUMAB [Concomitant]
     Active Substance: PEMBROLIZUMAB
     Indication: Endometrial cancer
     Dosage: DOSE AND FREQUENCY UNKNOWN

REACTIONS (4)
  - Interstitial lung disease [Unknown]
  - Hypothyroidism [Unknown]
  - Pyrexia [Recovered/Resolved]
  - Erythema multiforme [Unknown]
